FAERS Safety Report 8037088-5 (Version None)
Quarter: 2012Q1

REPORT INFORMATION
  Report Type: 
  Country: None (occurrence: None)
  Receive Date: 20120111
  Receipt Date: 20120109
  Transmission Date: 20120608
  Serious: Yes (Other)
  Sender: FDA-Public Use
  Company Number: US-GLAXOSMITHKLINE-A0960600A

PATIENT
  Sex: Male

DRUGS (5)
  1. NYSTATIN [Concomitant]
  2. SPIRIVA [Concomitant]
  3. TAMSULOSIN HCL [Concomitant]
  4. VENTOLIN HFA [Concomitant]
  5. ADVAIR DISKUS 100/50 [Suspect]
     Indication: CHRONIC OBSTRUCTIVE PULMONARY DISEASE
     Dosage: 1PUFF TWICE PER DAY
     Route: 055
     Dates: start: 20070101

REACTIONS (2)
  - CATARACT [None]
  - CANDIDIASIS [None]
